FAERS Safety Report 16187091 (Version 3)
Quarter: 2019Q4

REPORT INFORMATION
  Report Type: Report from Study
  Country: US (occurrence: US)
  Receive Date: 20190411
  Receipt Date: 20191014
  Transmission Date: 20200122
  Serious: Yes (Other)
  Sender: FDA-Public Use
  Company Number: US-MYLANLABS-2019M1030740

PATIENT
  Age: 75 Year
  Sex: Female
  Weight: 61 kg

DRUGS (2)
  1. GLATIRAMER ACETATE INJECTION [Suspect]
     Active Substance: GLATIRAMER ACETATE
     Indication: RELAPSING-REMITTING MULTIPLE SCLEROSIS
     Dosage: 40 MILLIGRAM THREE TIMES PER WEEK
     Route: 058
  2. GLATIRAMER ACETATE INJECTION [Suspect]
     Active Substance: GLATIRAMER ACETATE
     Dosage: 40 MILLIGRAMS TWO TIMES PER WEEK
     Route: 058

REACTIONS (7)
  - Muscular weakness [Unknown]
  - Contusion [Unknown]
  - Asthenia [Not Recovered/Not Resolved]
  - Rash macular [Not Recovered/Not Resolved]
  - Immunosuppression [Unknown]
  - Exposure to toxic agent [Unknown]
  - Off label use [Unknown]

NARRATIVE: CASE EVENT DATE: 20191003
